FAERS Safety Report 14161083 (Version 1)
Quarter: 2017Q4

REPORT INFORMATION
  Report Type: Spontaneous
  Country: US (occurrence: US)
  Receive Date: 20171104
  Receipt Date: 20171104
  Transmission Date: 20180321
  Serious: Yes (Other)
  Sender: FDA-Public Use
  Company Number: None

PATIENT
  Sex: Male
  Weight: 99 kg

DRUGS (6)
  1. HYDROCHLOTHIAZIDE [Concomitant]
     Active Substance: HYDROCHLOROTHIAZIDE
  2. FOLIC ACID B-12 [Concomitant]
  3. LANTUS [Concomitant]
     Active Substance: INSULIN GLARGINE
  4. CORDARONE [Suspect]
     Active Substance: AMIODARONE HYDROCHLORIDE
     Indication: ARRHYTHMIA PROPHYLAXIS
     Dates: start: 20170925, end: 20170929
  5. PRADAXA [Concomitant]
     Active Substance: DABIGATRAN ETEXILATE MESYLATE
  6. GABAPENTIN. [Concomitant]
     Active Substance: GABAPENTIN

REACTIONS (7)
  - Dizziness [None]
  - Feeling abnormal [None]
  - Dyspnoea [None]
  - Bradycardia [None]
  - Nodal rhythm [None]
  - Asthenia [None]
  - Peripheral swelling [None]

NARRATIVE: CASE EVENT DATE: 20170925
